FAERS Safety Report 8358050-9 (Version None)
Quarter: 2012Q2

REPORT INFORMATION
  Report Type: 
  Country: None (occurrence: None)
  Receive Date: 20120514
  Receipt Date: 20120501
  Transmission Date: 20120825
  Serious: Yes (Hospitalization)
  Sender: FDA-Public Use
  Company Number: DE-MYLANLABS-2012S1009373

PATIENT
  Age: 60 Year
  Sex: Male

DRUGS (3)
  1. CISPLATIN [Suspect]
     Indication: METASTATIC GASTRIC CANCER
     Dosage: 10 CYCLES
     Route: 065
  2. DOCETAXEL [Suspect]
     Indication: METASTATIC GASTRIC CANCER
     Dosage: 10 CYCLES
     Route: 065
  3. FLUOROURACIL [Suspect]
     Indication: METASTATIC GASTRIC CANCER
     Dosage: 10 CYCLES
     Route: 065

REACTIONS (2)
  - NAUSEA [None]
  - AORTIC ANEURYSM [None]
